FAERS Safety Report 15122486 (Version 1)
Quarter: 2018Q3

REPORT INFORMATION
  Report Type: Spontaneous
  Country: DE (occurrence: DE)
  Receive Date: 20180709
  Receipt Date: 20180709
  Transmission Date: 20181010
  Serious: Yes (Congenital Anomaly)
  Sender: FDA-Public Use
  Company Number: PHHY2018DE037226

PATIENT
  Age: 1 Day
  Sex: Male
  Weight: 3.32 kg

DRUGS (1)
  1. ENALAPRIL [Suspect]
     Active Substance: ENALAPRIL
     Indication: FOETAL EXPOSURE DURING PREGNANCY
     Dosage: 10 MG, BID (20 [MG/D (2X10) ]/ 10 MG TWICE THE DAY OR ONLY 10 MG/D)
     Route: 064

REACTIONS (1)
  - Renal hypoplasia [Unknown]

NARRATIVE: CASE EVENT DATE: 20180102
